FAERS Safety Report 5217993-5 (Version None)
Quarter: 2007Q1

REPORT INFORMATION
  Report Type: 
  Country: None (occurrence: None)
  Receive Date: 20070124
  Receipt Date: 20060112
  Transmission Date: 20070707
  Serious: No
  Sender: FDA-Public Use
  Company Number: US-AMGEN-US164483

PATIENT
  Sex: Female

DRUGS (14)
  1. EPOGEN [Suspect]
     Indication: DIALYSIS
     Dates: start: 20050501, end: 20051001
  2. ARANESP [Suspect]
     Dates: start: 20051001
  3. ZANAFLEX [Concomitant]
  4. LEXAPRO [Concomitant]
  5. PREDNISONE TAB [Concomitant]
  6. NEURONTIN [Concomitant]
  7. PREVACID [Concomitant]
  8. TOPROL-XL [Concomitant]
  9. DIATX [Concomitant]
  10. CELLCEPT [Concomitant]
  11. NIFEREX [Concomitant]
  12. MIRAPEX [Concomitant]
  13. LEVOXYL [Concomitant]
  14. ASPIRIN [Concomitant]

REACTIONS (3)
  - HAEMORRHOIDAL HAEMORRHAGE [None]
  - MENORRHAGIA [None]
  - THERAPEUTIC RESPONSE DECREASED [None]
